FAERS Safety Report 19722822 (Version 1)
Quarter: 2021Q3

REPORT INFORMATION
  Report Type: Report from Study
  Country: None (occurrence: US)
  Receive Date: 20210820
  Receipt Date: 20210820
  Transmission Date: 20211014
  Serious: Yes (Other)
  Sender: FDA-Public Use
  Company Number: US-ABBVIE-21K-163-3988971-00

PATIENT
  Sex: Female

DRUGS (7)
  1. HUMIRA [Suspect]
     Active Substance: ADALIMUMAB
     Route: 058
  2. HUMIRA [Suspect]
     Active Substance: ADALIMUMAB
     Indication: RHEUMATOID ARTHRITIS
     Route: 058
     Dates: start: 200708
  3. HUMIRA [Suspect]
     Active Substance: ADALIMUMAB
     Indication: RHEUMATOID ARTHRITIS
     Dosage: CITRATE FREE
     Route: 058
     Dates: start: 202001, end: 202007
  4. VITAMIN D [Concomitant]
     Active Substance: VITAMIN D NOS
     Indication: SUPPLEMENTATION THERAPY
  5. HUMIRA [Suspect]
     Active Substance: ADALIMUMAB
     Dosage: CITRATE FREE
     Route: 058
     Dates: start: 202106
  6. ALPRAZOLAM. [Concomitant]
     Active Substance: ALPRAZOLAM
     Indication: ANXIETY
  7. IRON [Concomitant]
     Active Substance: IRON
     Indication: SUPPLEMENTATION THERAPY

REACTIONS (17)
  - Psychological trauma [Recovering/Resolving]
  - Gait disturbance [Recovered/Resolved]
  - Fall [Unknown]
  - Rheumatoid arthritis [Not Recovered/Not Resolved]
  - Cartilage injury [Not Recovered/Not Resolved]
  - Sexual abuse [Unknown]
  - Anaemia [Unknown]
  - Osteoarthritis [Not Recovered/Not Resolved]
  - Joint range of motion decreased [Unknown]
  - Unevaluable event [Unknown]
  - Cartilage atrophy [Recovered/Resolved]
  - Weight increased [Not Recovered/Not Resolved]
  - Gait inability [Recovered/Resolved]
  - Inflammation [Unknown]
  - Skin discolouration [Unknown]
  - Migraine [Unknown]
  - Therapeutic product effect decreased [Unknown]

NARRATIVE: CASE EVENT DATE: 2019
